FAERS Safety Report 9742753 (Version 3)
Quarter: 2015Q3

REPORT INFORMATION
  Report Type: Spontaneous
  Country: US (occurrence: US)
  Receive Date: 20131210
  Receipt Date: 20150805
  Transmission Date: 20151125
  Serious: No
  Sender: FDA-Public Use
  Company Number: US-GILEAD-2009-0025806

PATIENT
  Age: 34 Year
  Sex: Female
  Weight: 86.18 kg

DRUGS (5)
  1. ATENOLOL. [Concomitant]
     Active Substance: ATENOLOL
  2. REPLIVA [Concomitant]
     Active Substance: SUCCINIC ACID
  3. LETAIRIS [Suspect]
     Active Substance: AMBRISENTAN
     Indication: PULMONARY ARTERIAL HYPERTENSION
     Route: 048
     Dates: start: 20091109
  4. LASIX [Concomitant]
     Active Substance: FUROSEMIDE
  5. ALTACE [Concomitant]
     Active Substance: RAMIPRIL

REACTIONS (1)
  - Nasal congestion [Unknown]
